FAERS Safety Report 4475132-2 (Version None)
Quarter: 2004Q4

REPORT INFORMATION
  Report Type: 
  Country: None (occurrence: None)
  Receive Date: 20041013
  Receipt Date: 20041013
  Transmission Date: 20050328
  Serious: Yes (Life-Threatening)
  Sender: FDA-Public Use
  Company Number: None

PATIENT
  Sex: Male
  Weight: 107.5025 kg

DRUGS (1)
  1. LEXAPRO [Suspect]
     Dosage: 1 TAB DAILY ORAL
     Route: 048

REACTIONS (14)
  - ABNORMAL BEHAVIOUR [None]
  - DIZZINESS [None]
  - ECONOMIC PROBLEM [None]
  - HOSTILITY [None]
  - IMPULSIVE BEHAVIOUR [None]
  - IRRITABILITY [None]
  - JOB DISSATISFACTION [None]
  - MANIA [None]
  - OBSESSIVE-COMPULSIVE DISORDER [None]
  - PERSONALITY CHANGE [None]
  - RELATIONSHIP BREAKDOWN [None]
  - STRESS SYMPTOMS [None]
  - SUICIDAL IDEATION [None]
  - VERBAL ABUSE [None]
